FAERS Safety Report 6880363-8 (Version None)
Quarter: 2010Q3

REPORT INFORMATION
  Report Type: 
  Country: None (occurrence: None)
  Receive Date: 20100728
  Receipt Date: 20100716
  Transmission Date: 20110219
  Serious: Yes (Hospitalization)
  Sender: FDA-Public Use
  Company Number: FR-KINGPHARMUSA00001-K201000898

PATIENT
  Age: 70 Year
  Sex: Male

DRUGS (8)
  1. ALTACE [Suspect]
     Indication: HYPERTENSION
     Dosage: 2.5 MG, BID
     Route: 048
  2. BISOPROLOL FUMARATE [Concomitant]
     Dosage: 10 MG, QD
  3. KARDEGIC [Concomitant]
     Dosage: 160 MG, QD
  4. NEXIUM [Concomitant]
     Dosage: 20 MG, QD
  5. CRESTOR [Concomitant]
     Dosage: 20 MG, QD
  6. FORTIMEL [Concomitant]
     Dosage: UNK
  7. IMOVANE [Concomitant]
     Dosage: UNK
  8. FORLAX [Concomitant]
     Dosage: 4000 UNK, PRN

REACTIONS (4)
  - DEHYDRATION [None]
  - DYSPHAGIA [None]
  - RENAL FAILURE ACUTE [None]
  - WEIGHT DECREASED [None]
